FAERS Safety Report 12898729 (Version 2)
Quarter: 2016Q4

REPORT INFORMATION
  Report Type: Spontaneous
  Country: KR (occurrence: KR)
  Receive Date: 20161101
  Receipt Date: 20161116
  Transmission Date: 20170207
  Serious: Yes (Hospitalization)
  Sender: FDA-Public Use
  Company Number: KR-CONCORDIA PHARMACEUTICALS INC.-GSH201610-005437

PATIENT
  Age: 36 Year
  Sex: Female

DRUGS (3)
  1. LENOGRASTIM [Suspect]
     Active Substance: LENOGRASTIM
     Indication: NEUTROPENIA
     Route: 065
  2. PREDNISOLONE. [Suspect]
     Active Substance: PREDNISOLONE
     Indication: SYSTEMIC LUPUS ERYTHEMATOSUS
     Route: 065
  3. HYDROXYCHLOROQUINE [Suspect]
     Active Substance: HYDROXYCHLOROQUINE
     Indication: SYSTEMIC LUPUS ERYTHEMATOSUS
     Route: 065

REACTIONS (11)
  - Condition aggravated [Recovered/Resolved]
  - Lupus vasculitis [Recovered/Resolved]
  - Abdominal tenderness [Recovered/Resolved]
  - Gastrointestinal wall thickening [Recovered/Resolved]
  - Gastrointestinal sounds abnormal [Recovered/Resolved]
  - Therapeutic response decreased [Recovered/Resolved]
  - Abdominal pain [Recovered/Resolved]
  - Neutropenia [Recovered/Resolved]
  - Haematochezia [Recovered/Resolved]
  - Vasculitis gastrointestinal [Recovered/Resolved]
  - Rash [Recovered/Resolved]
